FAERS Safety Report 4574033-9 (Version None)
Quarter: 2005Q1

REPORT INFORMATION
  Report Type: 
  Country: None (occurrence: None)
  Receive Date: 20050204
  Receipt Date: 20050124
  Transmission Date: 20050727
  Serious: Yes (Hospitalization)
  Sender: FDA-Public Use
  Company Number: 2005018297

PATIENT
  Age: 83 Year
  Sex: Female
  Weight: 62.5964 kg

DRUGS (6)
  1. BENADRYL [Suspect]
     Indication: NASAL CONGESTION
     Dosage: ONE KAPSEAL DAILY, ORAL
     Route: 048
     Dates: end: 20050123
  2. DILTIAZEM HYDROCHLORIDE [Concomitant]
  3. AMANTADINE (AMANTADINE) [Concomitant]
  4. CENTRUM (MINERALS NOS, VITAMINS N OS) [Concomitant]
  5. TOCOPHEROL (TOCOPHEROL) [Concomitant]
  6. POTASSIUM (POTASSIUM) [Concomitant]

REACTIONS (3)
  - ARRHYTHMIA [None]
  - DRUG INEFFECTIVE [None]
  - HEART RATE INCREASED [None]
